FAERS Safety Report 5508743-3 (Version None)
Quarter: 2007Q4

REPORT INFORMATION
  Report Type: 
  Country: None (occurrence: None)
  Receive Date: 20071105
  Receipt Date: 20071018
  Transmission Date: 20080405
  Serious: Yes (Other)
  Sender: FDA-Public Use
  Company Number: 2007BI019897

PATIENT
  Sex: Female

DRUGS (2)
  1. NATALIZUMAB [Suspect]
     Indication: MULTIPLE SCLEROSIS
     Dosage: 300 MG;QM;IV
     Route: 042
     Dates: start: 20061024
  2. AVONEX [Concomitant]

REACTIONS (3)
  - ARTHRALGIA [None]
  - KNEE OPERATION [None]
  - OSTEONECROSIS [None]
